FAERS Safety Report 8201524-1 (Version None)
Quarter: 2012Q1

REPORT INFORMATION
  Report Type: 
  Country: None (occurrence: None)
  Receive Date: 20120312
  Receipt Date: 20120229
  Transmission Date: 20120608
  Serious: Yes (Hospitalization, Other)
  Sender: FDA-Public Use
  Company Number: FR-GLAXOSMITHKLINE-B0753431A

PATIENT
  Sex: Female

DRUGS (7)
  1. METFORMIN HCL [Concomitant]
     Dosage: 700MG THREE TIMES PER DAY
  2. PROMACTA [Suspect]
     Indication: IDIOPATHIC THROMBOCYTOPENIC PURPURA
     Dosage: 25MG SEE DOSAGE TEXT
     Route: 048
     Dates: start: 20110401
  3. ATENOLOL [Concomitant]
     Dosage: 100MG PER DAY
  4. CALCIUM [Concomitant]
  5. TILCOTIL [Suspect]
     Indication: PRODUCT USED FOR UNKNOWN INDICATION
     Dosage: 20MG PER DAY
     Route: 048
     Dates: start: 20110922, end: 20110928
  6. NEXIUM [Suspect]
     Indication: PRODUCT USED FOR UNKNOWN INDICATION
     Dosage: 20MG PER DAY
     Route: 048
     Dates: start: 20110922, end: 20110928
  7. IRBESARTAN [Concomitant]
     Dosage: 150MG PER DAY

REACTIONS (5)
  - CARPAL TUNNEL SYNDROME [None]
  - DRUG INTERACTION [None]
  - THROMBOCYTOPENIA [None]
  - CYTOLYTIC HEPATITIS [None]
  - GINGIVAL BLEEDING [None]
